FAERS Safety Report 7517042-X (Version None)
Quarter: 2011Q2

REPORT INFORMATION
  Report Type: 
  Country: None (occurrence: None)
  Receive Date: 20110601
  Receipt Date: 20110518
  Transmission Date: 20111010
  Serious: Yes (Hospitalization)
  Sender: FDA-Public Use
  Company Number: DK-JNJFOC-20110508497

PATIENT
  Age: 60 Year
  Sex: Male
  Weight: 90 kg

DRUGS (8)
  1. IBUPROFEN [Concomitant]
     Route: 048
  2. SIMVASTATIN [Concomitant]
  3. FOLIMET [Concomitant]
  4. REMICADE [Suspect]
     Indication: SERONEGATIVE ARTHRITIS
     Route: 065
     Dates: start: 20090907, end: 20100225
  5. ENBREL [Suspect]
     Indication: PRODUCT USED FOR UNKNOWN INDICATION
     Dates: start: 20100226, end: 20101116
  6. ALENDRONATE SODIUM [Concomitant]
  7. METHOTREXATE SODIUM [Concomitant]
  8. ACETAMINOPHEN [Concomitant]

REACTIONS (1)
  - LANGERHANS' CELL HISTIOCYTOSIS [None]
